FAERS Safety Report 8597435-2 (Version None)
Quarter: 2012Q3

REPORT INFORMATION
  Report Type: 
  Country: None (occurrence: None)
  Receive Date: 20120816
  Receipt Date: 20120801
  Transmission Date: 20120928
  Serious: Yes (Life-Threatening, Hospitalization)
  Sender: FDA-Public Use
  Company Number: US-JNJFOC-20120800221

PATIENT
  Sex: Male
  Weight: 125 kg

DRUGS (27)
  1. POTASSIUM CHLORIDE [Concomitant]
     Dates: start: 20120114
  2. NEXIUM [Concomitant]
     Indication: GASTROOESOPHAGEAL REFLUX DISEASE
     Dates: start: 20050916
  3. METAMUCIL-2 [Concomitant]
     Indication: CONSTIPATION
  4. ACETAMINOPHEN [Concomitant]
     Indication: OSTEOARTHRITIS
     Dates: start: 20110806
  5. PREDNISONE TAB [Suspect]
     Indication: PROSTATE CANCER METASTATIC
     Route: 048
     Dates: start: 20111222, end: 20120726
  6. ASPIRIN [Concomitant]
     Indication: PERIPHERAL VASCULAR DISORDER
  7. POTASSIUM CHLORIDE [Concomitant]
     Indication: HYPOKALAEMIA
     Dates: start: 20120116
  8. POTASSIUM CHLORIDE [Concomitant]
     Indication: OEDEMA
     Dates: start: 20120116
  9. PEPCID [Concomitant]
  10. VITAMIN D [Concomitant]
     Indication: OSTEOPENIA
     Dates: start: 20110406
  11. NASONEX [Concomitant]
     Indication: RHINITIS
  12. MILK OF MAGNESIA TAB [Concomitant]
     Indication: CONSTIPATION
     Dates: start: 20120114
  13. ABIRATERONE ACETATE [Suspect]
     Indication: PROSTATE CANCER METASTATIC
     Route: 048
     Dates: start: 20111222, end: 20120726
  14. CALCIUM WITH VITAMIN D [Concomitant]
     Indication: OSTEOPENIA
     Dates: start: 20110302
  15. HYDROCODONE BITARTRATE [Concomitant]
     Indication: OSTEOARTHRITIS
     Dates: start: 20110806
  16. DEGARELIX [Concomitant]
     Route: 058
     Dates: start: 20120310
  17. ABIRATERONE ACETATE [Suspect]
     Route: 048
  18. BUMETANIDE [Concomitant]
     Indication: OEDEMA
  19. CARAFATE [Concomitant]
     Indication: ULCER
     Dates: start: 20110701
  20. CARAFATE [Concomitant]
     Indication: GASTROOESOPHAGEAL REFLUX DISEASE
     Dates: start: 20110701
  21. MIRALAX [Concomitant]
     Indication: CONSTIPATION
     Dates: start: 20120114
  22. PEPCID [Concomitant]
     Indication: DYSPEPSIA
  23. NASONEX [Concomitant]
     Indication: SEASONAL ALLERGY
  24. TOVIAZ [Concomitant]
     Indication: POLLAKIURIA
     Dates: start: 20120411
  25. POTASSIUM CHLORIDE [Concomitant]
     Dates: start: 20120114
  26. DOCUSATE [Concomitant]
     Indication: CONSTIPATION
     Dates: start: 20120114
  27. BONIVA [Concomitant]
     Indication: OSTEOPENIA
     Dates: start: 20111007

REACTIONS (1)
  - SEPSIS [None]
